FAERS Safety Report 9979379 (Version 1)
Quarter: 2014Q1

REPORT INFORMATION
  Report Type: Report from Study
  Country: US (occurrence: US)
  Receive Date: 20140306
  Receipt Date: 20140306
  Transmission Date: 20141002
  Serious: No
  Sender: FDA-Public Use
  Company Number: US-ABBVIE-13P-163-1172900-00

PATIENT
  Age: 73 Year
  Sex: Female
  Weight: 76.73 kg

DRUGS (9)
  1. HUMIRA [Suspect]
     Indication: RHEUMATOID ARTHRITIS
     Route: 058
     Dates: start: 20130213
  2. METHOTREXATE [Concomitant]
     Indication: RHEUMATOID ARTHRITIS
     Route: 048
  3. FOLIC ACID [Concomitant]
     Indication: VITAMIN SUPPLEMENTATION
     Route: 048
  4. PREDNISONE [Concomitant]
     Indication: ECZEMA
     Route: 048
  5. ATENOLOL [Concomitant]
     Indication: HYPERTENSION
     Route: 048
  6. VITAMIN D3 [Concomitant]
     Indication: VITAMIN SUPPLEMENTATION
     Route: 048
  7. BACLOFEN [Concomitant]
     Indication: MUSCLE SPASMS
     Route: 048
  8. CREAM [Concomitant]
     Indication: ECZEMA
     Route: 061
  9. CREAM [Concomitant]
     Indication: ROSACEA

REACTIONS (8)
  - Lacrimation increased [Not Recovered/Not Resolved]
  - Pruritus [Not Recovered/Not Resolved]
  - Eczema [Not Recovered/Not Resolved]
  - Rosacea [Not Recovered/Not Resolved]
  - Fatigue [Not Recovered/Not Resolved]
  - Hypersomnia [Not Recovered/Not Resolved]
  - Tendonitis [Not Recovered/Not Resolved]
  - Upper respiratory tract infection [Recovered/Resolved]
